FAERS Safety Report 9752223 (Version 1)
Quarter: 2013Q4

REPORT INFORMATION
  Report Type: Spontaneous
  Country: US (occurrence: None)
  Receive Date: 20131211
  Receipt Date: 20131211
  Transmission Date: 20140711
  Serious: Yes (Other)
  Sender: FDA-Public Use
  Company Number: None

PATIENT
  Age: 40 Year
  Sex: Female
  Weight: 80 kg

DRUGS (5)
  1. MODAFINIL 200MG [Suspect]
     Indication: NARCOLEPSY
     Dosage: 2 PILLS QD ORAL
     Route: 048
     Dates: start: 20131122, end: 20131206
  2. RISPERIDONE [Concomitant]
  3. OMEPRAZOLE [Concomitant]
  4. CETIRIZINE [Concomitant]
  5. CYMBALTA [Concomitant]

REACTIONS (2)
  - Drug ineffective [None]
  - Product substitution issue [None]
